FAERS Safety Report 11957587 (Version 3)
Quarter: 2016Q2

REPORT INFORMATION
  Report Type: Report from Study
  Country: AU (occurrence: AU)
  Receive Date: 20160126
  Receipt Date: 20160411
  Transmission Date: 20160815
  Serious: Yes (Other)
  Sender: FDA-Public Use
  Company Number: AU-ABBVIE-16P-008-1542185-00

PATIENT
  Age: 61 Year
  Sex: Female
  Weight: 54 kg

DRUGS (3)
  1. VIEKIRA PAK [Suspect]
     Active Substance: DASABUVIR\OMBITASVIR\PARITAPREVIR\RITONAVIR
     Indication: HEPATITIS C
     Dosage: AV1 X 2 IN THE MORNING, AV2 X 1 AT NIGHT, RIBAVIRIN 200MG X 3 IN THE MORNING, X 2 AT NIGHT
     Route: 048
     Dates: start: 20151214, end: 20160305
  2. RIBAVIRIN. [Suspect]
     Active Substance: RIBAVIRIN
     Indication: HEPATITIS C
     Dosage: 200MG X3 IN AM, X2 IN PM (1000MG)
     Route: 048
     Dates: start: 20151214, end: 20160305
  3. TIMOLOL. [Concomitant]
     Active Substance: TIMOLOL
     Indication: GLAUCOMA
     Dosage: 0.5% X 1 DROP
     Route: 047
     Dates: start: 2014

REACTIONS (6)
  - Headache [Recovered/Resolved]
  - Jaundice [Recovering/Resolving]
  - Blood bilirubin increased [Recovered/Resolved]
  - Haemolytic anaemia [Recovered/Resolved]
  - Haemoglobin decreased [Not Recovered/Not Resolved]
  - Asthenia [Recovered/Resolved]

NARRATIVE: CASE EVENT DATE: 20151221
